FAERS Safety Report 4490463-8 (Version None)
Quarter: 2004Q4

REPORT INFORMATION
  Report Type: 
  Country: None (occurrence: None)
  Receive Date: 20041028
  Receipt Date: 20041012
  Transmission Date: 20050328
  Serious: Yes (Death)
  Sender: FDA-Public Use
  Company Number: 2004AP05235

PATIENT
  Age: 68 Year
  Sex: Male

DRUGS (1)
  1. ZESTRIL [Suspect]

REACTIONS (4)
  - CARDIAC ARREST [None]
  - COUGH [None]
  - HAEMATEMESIS [None]
  - HAEMOPTYSIS [None]
